FAERS Safety Report 4654218-3 (Version None)
Quarter: 2005Q2

REPORT INFORMATION
  Report Type: 
  Country: None (occurrence: None)
  Receive Date: 20050505
  Receipt Date: 20050428
  Transmission Date: 20051028
  Serious: Yes (Hospitalization, Disabling)
  Sender: FDA-Public Use
  Company Number: US-MERCK-0505USA00160

PATIENT
  Age: 81 Year
  Sex: Female

DRUGS (1)
  1. VIOXX [Suspect]
     Route: 048
     Dates: start: 20010201, end: 20040416

REACTIONS (3)
  - ARRHYTHMIA SUPRAVENTRICULAR [None]
  - CEREBROVASCULAR ACCIDENT [None]
  - SICK SINUS SYNDROME [None]
